FAERS Safety Report 5612328-8 (Version None)
Quarter: 2008Q1

REPORT INFORMATION
  Report Type: 
  Country: None (occurrence: None)
  Receive Date: 20080204
  Receipt Date: 20080128
  Transmission Date: 20080703
  Serious: Yes (Hospitalization)
  Sender: FDA-Public Use
  Company Number: CN-JNJFOC-20080106567

PATIENT
  Age: 9 Year
  Sex: Male

DRUGS (5)
  1. TYLENOL [Suspect]
  2. TYLENOL [Suspect]
     Indication: PYREXIA
  3. CHILDREN'S MOTRIN [Suspect]
  4. CHILDREN'S MOTRIN [Suspect]
     Indication: PYREXIA
  5. CEPHALOSPORIN [Suspect]
     Indication: ANTIBIOTIC PROPHYLAXIS

REACTIONS (4)
  - COUGH [None]
  - RASH [None]
  - VIRAL INFECTION [None]
  - WHITE BLOOD CELL COUNT DECREASED [None]
